FAERS Safety Report 7332145-0 (Version None)
Quarter: 2011Q1

REPORT INFORMATION
  Report Type: 
  Country: None (occurrence: None)
  Receive Date: 20110223
  Receipt Date: 20110207
  Transmission Date: 20110831
  Serious: Yes (Hospitalization)
  Sender: FDA-Public Use
  Company Number: 1000018268

PATIENT
  Age: 83 Year
  Sex: Female
  Weight: 56 kg

DRUGS (4)
  1. ATARAX [Concomitant]
  2. ESCITALOPRAM (ESITALOPRAM OXALATE) (TABLETS) [Suspect]
     Indication: DEPRESSION
     Dosage: 10 MG (10 MG,1 IN 1 D),ORAL
     Route: 048
     Dates: start: 20101201, end: 20110103
  3. KARDEGIC (ACETYLSALICYLATE LYSINE) (ACETYLSALICYLATE LYSINE) [Concomitant]
  4. TEMERIT (NEBIVOLOL) (NEBIVOLOL) [Concomitant]

REACTIONS (4)
  - GENERAL PHYSICAL HEALTH DETERIORATION [None]
  - PANCYTOPENIA [None]
  - CARDIAC FAILURE [None]
  - PURPURA [None]
